FAERS Safety Report 5977237-3 (Version None)
Quarter: 2008Q4

REPORT INFORMATION
  Report Type: 
  Country: None (occurrence: None)
  Receive Date: 20081201
  Receipt Date: 20081201
  Transmission Date: 20090506
  Serious: Yes (Life-Threatening, Hospitalization)
  Sender: FDA-Public Use
  Company Number: None

PATIENT
  Sex: Female
  Weight: 95.2554 kg

DRUGS (1)
  1. ALKA_SELTZER PLUS COLD + COUGH [Suspect]
     Indication: SINUS HEADACHE
     Dosage: 2 TABLETS EVERY 8 HOURS 3 DOSES
     Dates: start: 20080903, end: 20080909

REACTIONS (5)
  - BLOOD PRESSURE INCREASED [None]
  - DRUG INEFFECTIVE [None]
  - HEADACHE [None]
  - LOSS OF CONSCIOUSNESS [None]
  - SPEECH DISORDER [None]
